FAERS Safety Report 23570548 (Version 2)
Quarter: 2024Q2

REPORT INFORMATION
  Report Type: Spontaneous
  Country: US (occurrence: US)
  Receive Date: 20240227
  Receipt Date: 20240405
  Transmission Date: 20240716
  Serious: Yes (Disabling)
  Sender: FDA-Public Use
  Company Number: US-BoehringerIngelheim-2024-BI-010770

PATIENT
  Sex: Female

DRUGS (1)
  1. PRADAXA [Suspect]
     Active Substance: DABIGATRAN ETEXILATE MESYLATE
     Indication: Product used for unknown indication

REACTIONS (4)
  - Gait inability [Not Recovered/Not Resolved]
  - Pain in extremity [Unknown]
  - Blood pressure fluctuation [Unknown]
  - Product packaging difficult to open [Unknown]
